FAERS Safety Report 18495149 (Version 1)
Quarter: 2020Q4

REPORT INFORMATION
  Report Type: Spontaneous
  Country: US (occurrence: US)
  Receive Date: 20201111
  Receipt Date: 20201111
  Transmission Date: 20210114
  Serious: Yes (Other)
  Sender: FDA-Public Use
  Company Number: None

PATIENT
  Age: 64 Year
  Sex: Female
  Weight: 57.15 kg

DRUGS (18)
  1. MEPERIDINE [Concomitant]
     Active Substance: MEPERIDINE
     Dates: start: 20201028, end: 20201028
  2. AZTREONAM. [Concomitant]
     Active Substance: AZTREONAM
     Dates: start: 20200925, end: 20200928
  3. FLUCONAZOLE. [Concomitant]
     Active Substance: FLUCONAZOLE
     Dates: start: 20200921, end: 20201002
  4. MAGNESIUM SULFATE. [Concomitant]
     Active Substance: MAGNESIUM SULFATE
     Dates: start: 20200921, end: 20201002
  5. PANTOPRAZOLE [Concomitant]
     Active Substance: PANTOPRAZOLE
     Dates: start: 20200921, end: 20201002
  6. VALACYCLOVIR [Concomitant]
     Active Substance: VALACYCLOVIR HYDROCHLORIDE
     Dates: start: 20200921, end: 20201002
  7. CHLORHEXIDINE [Concomitant]
     Active Substance: CHLORHEXIDINE
     Dates: start: 20200922, end: 20201002
  8. MAGNESIUM OXIDE. [Concomitant]
     Active Substance: MAGNESIUM OXIDE
     Dates: start: 20200921, end: 20201002
  9. ONDANSETRON [Concomitant]
     Active Substance: ONDANSETRON
     Dates: start: 20200921, end: 20201002
  10. SUPERSATURATED CALCIUM PHOSPHATE RINSE [Concomitant]
     Dates: start: 20200921, end: 20201002
  11. CIPROFLOXACIN. [Concomitant]
     Active Substance: CIPROFLOXACIN
     Dates: start: 20200921, end: 20201002
  12. INSULIN LISPRO [Concomitant]
     Active Substance: INSULIN LISPRO
     Dates: start: 20200921, end: 20201002
  13. AXICABTAGENE CILOLEUCEL [Suspect]
     Active Substance: AXICABTAGENE CILOLEUCEL
     Indication: DIFFUSE LARGE B-CELL LYMPHOMA
     Dosage: ?          OTHER FREQUENCY:ONCE;?
     Route: 041
     Dates: start: 20200921, end: 20200921
  14. MOXIFLOXACIN OPTH [Concomitant]
     Dates: start: 20200925, end: 20201002
  15. ALPRAZOLAM. [Concomitant]
     Active Substance: ALPRAZOLAM
     Dates: start: 20200921, end: 20200922
  16. INSULIN GLARGINE [Concomitant]
     Active Substance: INSULIN GLARGINE
     Dates: start: 20200921, end: 20201002
  17. TRAMADOL. [Concomitant]
     Active Substance: TRAMADOL
     Dates: start: 20200924, end: 20201001
  18. POTASSIUM CHLORIDE. [Concomitant]
     Active Substance: POTASSIUM CHLORIDE
     Dates: start: 20200921, end: 20201002

REACTIONS (1)
  - Cytokine release syndrome [None]

NARRATIVE: CASE EVENT DATE: 20200925
